FAERS Safety Report 8891928 (Version 1)
Quarter: 2012Q4

REPORT INFORMATION
  Report Type: Spontaneous
  Country: US (occurrence: None)
  Receive Date: 20121031
  Receipt Date: 20121031
  Transmission Date: 20130627
  Serious: Yes (Hospitalization, Other)
  Sender: FDA-Public Use
  Company Number: 2012P1061096

PATIENT
  Age: 49 Year
  Sex: Male

DRUGS (4)
  1. AMOXICILLIN [Suspect]
     Indication: HELICOBACTER PYLORI GASTRITIS
  2. CLARITHROMYCIN [Suspect]
     Indication: HELICOBACTER PYLORI GASTRITIS
  3. LANSOPRAZOLE (NO PREF. NAME) [Suspect]
     Indication: HELICOBACTER PYLORI GASTRITIS
  4. OMEPRAZOLE [Concomitant]

REACTIONS (11)
  - Abnormal behaviour [None]
  - Staring [None]
  - Unresponsive to stimuli [None]
  - Feeling abnormal [None]
  - Screaming [None]
  - Dyskinesia [None]
  - Lethargy [None]
  - Dyskinesia [None]
  - Sinus tachycardia [None]
  - Psychotic disorder [None]
  - Mental status changes [None]
